FAERS Safety Report 6931609-9 (Version None)
Quarter: 2010Q3

REPORT INFORMATION
  Report Type: 
  Country: None (occurrence: None)
  Receive Date: 20100819
  Receipt Date: 20100812
  Transmission Date: 20110219
  Serious: Yes (Hospitalization)
  Sender: FDA-Public Use
  Company Number: DE-SANOFI-AVENTIS-2010SA047726

PATIENT
  Age: 46 Year
  Sex: Female
  Weight: 78 kg

DRUGS (7)
  1. DOCETAXEL [Suspect]
     Indication: BREAST CANCER
     Route: 041
     Dates: start: 20100115, end: 20100115
  2. DOCETAXEL [Suspect]
     Route: 041
     Dates: start: 20100521, end: 20100521
  3. TRASTUZUMAB [Suspect]
     Indication: BREAST CANCER
     Route: 041
     Dates: start: 20100115, end: 20100115
  4. TRASTUZUMAB [Suspect]
     Route: 041
     Dates: start: 20100521, end: 20100521
  5. INSULIN [Concomitant]
     Indication: DIABETES MELLITUS
     Route: 065
  6. LEVOTHYROXINE SODIUM [Concomitant]
     Indication: HYPOTHYROIDISM
     Route: 065
  7. SIMVASTATIN [Concomitant]
     Indication: PRODUCT USED FOR UNKNOWN INDICATION
     Route: 065

REACTIONS (1)
  - PERICARDITIS [None]
